FAERS Safety Report 17689704 (Version 1)
Quarter: 2020Q2

REPORT INFORMATION
  Report Type: Spontaneous
  Country: US (occurrence: US)
  Receive Date: 20200421
  Receipt Date: 20200421
  Transmission Date: 20200714
  Serious: Yes (Other)
  Sender: FDA-Public Use
  Company Number: None

PATIENT
  Age: 43 Year
  Sex: Female

DRUGS (1)
  1. BUPRENORPHINE HYDROCHLORIDE-NALOXONE HCL 8 MG-2 MG TABLET [Suspect]
     Active Substance: BUPRENORPHINE HYDROCHLORIDE\NALOXONE HYDROCHLORIDE
     Indication: DRUG DEPENDENCE
     Route: 060
     Dates: start: 20181022

REACTIONS (5)
  - Therapy interrupted [None]
  - Drug level decreased [None]
  - Product solubility abnormal [None]
  - Drug dependence [None]
  - Headache [None]

NARRATIVE: CASE EVENT DATE: 20200409
